FAERS Safety Report 14487594 (Version 1)
Quarter: 2018Q1

REPORT INFORMATION
  Report Type: Other
  Country: FR (occurrence: FR)
  Receive Date: 20180205
  Receipt Date: 20180205
  Transmission Date: 20180509
  Serious: Yes (Hospitalization, Other)
  Sender: FDA-Public Use
  Company Number: FR-GLENMARK PHARMACEUTICALS-2017GMK031345

PATIENT

DRUGS (11)
  1. HYDROCORTISONE BUTYRATE. [Suspect]
     Active Substance: HYDROCORTISONE BUTYRATE
     Indication: PRODUCT USED FOR UNKNOWN INDICATION
     Dosage: 15 MG, 1X/DAY:QD
     Route: 037
     Dates: start: 20170706, end: 20170802
  2. METHOTREXATE. [Suspect]
     Active Substance: METHOTREXATE
     Indication: ACUTE LYMPHOCYTIC LEUKAEMIA
     Dosage: 12 MG, 1X/DAY:QD
     Route: 037
     Dates: start: 20170706, end: 20170802
  3. ADRIAMYCIN [Suspect]
     Active Substance: DOXORUBICIN HYDROCHLORIDE
     Indication: ACUTE LYMPHOCYTIC LEUKAEMIA
     Dosage: 18.4 MG, 1X/DAY:QD
     Route: 042
     Dates: start: 20170703, end: 20170717
  4. THIOGUANINE [Suspect]
     Active Substance: THIOGUANINE
     Indication: ACUTE LYMPHOCYTIC LEUKAEMIA
     Dosage: 40 MG, 1X/DAY:QD
     Route: 048
     Dates: start: 20170731, end: 20170813
  5. VINCRISTINE [Suspect]
     Active Substance: VINCRISTINE
     Indication: ACUTE LYMPHOCYTIC LEUKAEMIA
     Dosage: 1.1 MG, 1X/DAY:QD
     Route: 042
     Dates: start: 20170703, end: 20170821
  6. PEGASPARGASE [Suspect]
     Active Substance: PEGASPARGASE
     Indication: ACUTE LYMPHOCYTIC LEUKAEMIA
     Dosage: 1875 IU, UNK
     Route: 042
     Dates: start: 20170706, end: 20170706
  7. CYCLOPHOSPHAMIDE. [Suspect]
     Active Substance: CYCLOPHOSPHAMIDE
     Indication: ACUTE LYMPHOCYTIC LEUKAEMIA
     Dosage: 740 MG, 1X/DAY:QD
     Route: 042
     Dates: start: 20170731, end: 20170731
  8. PEGASPARGASE [Suspect]
     Active Substance: PEGASPARGASE
     Dosage: 1875 IU, UNK
     Route: 042
     Dates: start: 20170814, end: 20170814
  9. CYTARABINE. [Suspect]
     Active Substance: CYTARABINE
     Dosage: 30 MG, 1X/DAY:QD
     Route: 037
     Dates: start: 20170706, end: 20170802
  10. DEXAMETHASONE. [Suspect]
     Active Substance: DEXAMETHASONE
     Indication: ACUTE LYMPHOCYTIC LEUKAEMIA
     Dosage: 8 MG, 1X/DAY:QD
     Route: 048
     Dates: start: 20170703, end: 20170723
  11. CYTARABINE. [Suspect]
     Active Substance: CYTARABINE
     Indication: ACUTE LYMPHOCYTIC LEUKAEMIA
     Dosage: 55 MG, 1X/DAY:QD
     Route: 042
     Dates: start: 20170802, end: 20170812

REACTIONS (1)
  - Febrile bone marrow aplasia [Recovered/Resolved with Sequelae]

NARRATIVE: CASE EVENT DATE: 20170821
